FAERS Safety Report 7586782-9 (Version None)
Quarter: 2011Q3

REPORT INFORMATION
  Report Type: 
  Country: None (occurrence: None)
  Receive Date: 20110701
  Receipt Date: 20110616
  Transmission Date: 20111222
  Serious: Yes (Life-Threatening, Hospitalization)
  Sender: FDA-Public Use
  Company Number: JP-WATSON-2011-09538

PATIENT
  Age: 84 Year
  Sex: Male

DRUGS (1)
  1. INDAPAMIDE [Suspect]
     Indication: HYPERTENSION
     Route: 048

REACTIONS (6)
  - RHABDOMYOLYSIS [None]
  - VENTRICULAR EXTRASYSTOLES [None]
  - CARDIOPULMONARY FAILURE [None]
  - HYPOKALAEMIA [None]
  - VENTRICULAR FLUTTER [None]
  - BUNDLE BRANCH BLOCK [None]
